FAERS Safety Report 6644116-8 (Version None)
Quarter: 2010Q1

REPORT INFORMATION
  Report Type: 
  Country: None (occurrence: None)
  Receive Date: 20100322
  Receipt Date: 20100310
  Transmission Date: 20100710
  Serious: Yes (Hospitalization)
  Sender: FDA-Public Use
  Company Number: PHHY2010US14276

PATIENT
  Sex: Male
  Weight: 91 kg

DRUGS (1)
  1. EXJADE [Suspect]
     Indication: IRON METABOLISM DISORDER
     Dosage: 1750 MG/DAILY
     Route: 048
     Dates: end: 20100222

REACTIONS (2)
  - HAEMOLYTIC ANAEMIA [None]
  - SPLEEN DISORDER [None]
